FAERS Safety Report 8308508-3 (Version None)
Quarter: 2012Q1

REPORT INFORMATION
  Report Type: 
  Country: None (occurrence: None)
  Receive Date: 20120327
  Receipt Date: 20110124
  Transmission Date: 20120608
  Serious: Yes (Other)
  Sender: FDA-Public Use
  Company Number: PHHY2011US06144

PATIENT
  Sex: Male
  Weight: 133 kg

DRUGS (3)
  1. GLEEVEC [Suspect]
     Indication: CHRONIC MYELOID LEUKAEMIA
     Dosage: 400 MG, DAILY, ORAL
     Route: 048
     Dates: start: 20071101
  2. VERPAMIL (VERPAMIL) [Concomitant]
  3. NEXIUM [Concomitant]

REACTIONS (1)
  - VIRAL INFECTION [None]
